FAERS Safety Report 10267415 (Version 1)
Quarter: 2014Q2

REPORT INFORMATION
  Report Type: Spontaneous
  Country: CA (occurrence: CA)
  Receive Date: 20140630
  Receipt Date: 20140630
  Transmission Date: 20141212
  Serious: Yes (Death, Hospitalization)
  Sender: FDA-Public Use
  Company Number: CA-MYLANLABS-2014S1014655

PATIENT
  Age: 39 Year
  Sex: Female
  Weight: 90 kg

DRUGS (13)
  1. COLCHICINE [Suspect]
     Indication: INTENTIONAL OVERDOSE
     Dosage: 40 TABLETS (25MG, 0.28 MG/KG)
     Route: 048
  2. INDOMETACIN [Suspect]
     Indication: INTENTIONAL OVERDOSE
     Dosage: 50 TABLETS (1250MG)
     Route: 048
  3. INDOMETACIN [Suspect]
     Indication: OFF LABEL USE
     Dosage: 50 TABLETS (1250MG)
     Route: 048
  4. ZOPICLONE [Suspect]
     Indication: INTENTIONAL OVERDOSE
     Dosage: 10 TABLETS (75MG)
     Route: 048
  5. ZOPICLONE [Suspect]
     Indication: OFF LABEL USE
     Dosage: 10 TABLETS (75MG)
     Route: 048
  6. TOPIRAMATE [Concomitant]
     Route: 065
  7. VALPROIC ACID [Concomitant]
     Route: 065
  8. OLANZAPINE [Concomitant]
     Route: 065
  9. LORAZEPAM [Concomitant]
     Route: 065
  10. LEVOTHYROXINE SODIUM [Concomitant]
     Route: 065
  11. OXYCODONE [Concomitant]
     Route: 065
  12. FUROSEMIDE [Concomitant]
     Route: 065
  13. OMEPRAZOLE [Concomitant]
     Route: 065

REACTIONS (17)
  - Intentional overdose [Fatal]
  - Febrile neutropenia [Fatal]
  - Multi-organ failure [Fatal]
  - Septic shock [Fatal]
  - Nausea [Unknown]
  - Vomiting [Unknown]
  - Diarrhoea [Unknown]
  - Abdominal pain [Unknown]
  - Dyspnoea [Unknown]
  - Metabolic acidosis [Unknown]
  - Agitation [Unknown]
  - Respiratory distress [Unknown]
  - Tachycardia [Unknown]
  - Tachypnoea [Unknown]
  - Pyrexia [Unknown]
  - Hypotension [Unknown]
  - White blood cell count decreased [Unknown]
